FAERS Safety Report 6228273-3 (Version None)
Quarter: 2009Q2

REPORT INFORMATION
  Report Type: 
  Country: None (occurrence: None)
  Receive Date: 20090612
  Receipt Date: 20090604
  Transmission Date: 20091009
  Serious: Yes (Other)
  Sender: FDA-Public Use
  Company Number: PHEH2009US05714

PATIENT
  Sex: Male

DRUGS (2)
  1. RECLAST [Suspect]
     Dosage: UNK
  2. TYLENOL (CAPLET) [Suspect]

REACTIONS (6)
  - ASTHENIA [None]
  - CHILDHOOD DISINTEGRATIVE DISORDER [None]
  - CHILLS [None]
  - FATIGUE [None]
  - HEPATITIS C [None]
  - PAIN [None]
